FAERS Safety Report 12250571 (Version 3)
Quarter: 2016Q3

REPORT INFORMATION
  Report Type: Spontaneous
  Country: US (occurrence: US)
  Receive Date: 20160408
  Receipt Date: 20160805
  Transmission Date: 20161109
  Serious: No
  Sender: FDA-Public Use
  Company Number: US-PFIZER INC-2016194648

PATIENT
  Age: 54 Year
  Sex: Male

DRUGS (6)
  1. FOLIC ACID. [Concomitant]
     Active Substance: FOLIC ACID
     Dosage: UNK
  2. XELJANZ [Suspect]
     Active Substance: TOFACITINIB CITRATE
     Dosage: 5 MG, 2X/DAY
     Route: 048
  3. XELJANZ [Suspect]
     Active Substance: TOFACITINIB CITRATE
     Indication: RHEUMATOID ARTHRITIS
     Dosage: 5 MG, 2X/DAY
     Route: 048
  4. PREDNISONE. [Concomitant]
     Active Substance: PREDNISONE
     Dosage: UNK
  5. METHOTREXATE. [Concomitant]
     Active Substance: METHOTREXATE
     Dosage: UNK
  6. NAPROSYN [Concomitant]
     Active Substance: NAPROXEN
     Dosage: UNK

REACTIONS (9)
  - Depression [Unknown]
  - Nasopharyngitis [Unknown]
  - Pain in extremity [Unknown]
  - Nausea [Unknown]
  - Pain [Unknown]
  - Joint swelling [Unknown]
  - Drug ineffective [Unknown]
  - Fatigue [Unknown]
  - Peripheral swelling [Unknown]
